FAERS Safety Report 13948196 (Version 6)
Quarter: 2018Q1

REPORT INFORMATION
  Report Type: Report from Study
  Country: None (occurrence: CO)
  Receive Date: 20170908
  Receipt Date: 20180121
  Transmission Date: 20180508
  Serious: Yes (Other)
  Sender: FDA-Public Use
  Company Number: CO-ABBVIE-17K-036-2094132-00

PATIENT
  Age: 11 Year
  Sex: Female
  Weight: 32 kg

DRUGS (1)
  1. HUMIRA [Suspect]
     Active Substance: ADALIMUMAB
     Indication: PSORIASIS
     Dosage: PEDIATRIC VIAL
     Route: 058
     Dates: start: 20160525

REACTIONS (8)
  - Alopecia [Recovering/Resolving]
  - Epistaxis [Recovering/Resolving]
  - Trichorrhexis [Recovering/Resolving]
  - Psoriasis [Recovering/Resolving]
  - Impetigo [Recovering/Resolving]
  - Headache [Recovering/Resolving]
  - Cutaneous lupus erythematosus [Unknown]
  - Fungal infection [Recovering/Resolving]

NARRATIVE: CASE EVENT DATE: 20170820
